FAERS Safety Report 18191813 (Version 1)
Quarter: 2020Q3

REPORT INFORMATION
  Report Type: Spontaneous
  Country: US (occurrence: US)
  Receive Date: 20200824
  Receipt Date: 20200824
  Transmission Date: 20201103
  Serious: Yes (Other)
  Sender: FDA-Public Use
  Company Number: None

PATIENT
  Age: 55 Year
  Sex: Male

DRUGS (1)
  1. SIROLIMUS. [Suspect]
     Active Substance: SIROLIMUS
     Indication: HEART TRANSPLANT
     Route: 048
     Dates: start: 20200814, end: 20200821

REACTIONS (5)
  - Swelling of eyelid [None]
  - Headache [None]
  - Insomnia [None]
  - Decreased appetite [None]
  - Erythema [None]

NARRATIVE: CASE EVENT DATE: 20200821
